FAERS Safety Report 12657145 (Version 1)
Quarter: 2016Q3

REPORT INFORMATION
  Report Type: Report from Study
  Country: BR (occurrence: BR)
  Receive Date: 20160816
  Receipt Date: 20160816
  Transmission Date: 20161109
  Serious: Yes (Hospitalization, Other)
  Sender: FDA-Public Use
  Company Number: PHHY2016BR110043

PATIENT
  Sex: Female
  Weight: 52 kg

DRUGS (7)
  1. ANADOR//METAMIZOLE [Suspect]
     Active Substance: METAMIZOLE
     Indication: HEADACHE
  2. ACLASTA [Suspect]
     Active Substance: ZOLEDRONIC ACID
     Indication: PANIC DISORDER
  3. ACLASTA [Suspect]
     Active Substance: ZOLEDRONIC ACID
     Indication: SPINAL CORD HERNIATION
  4. ACLASTA [Suspect]
     Active Substance: ZOLEDRONIC ACID
     Indication: OSTEOARTHRITIS
     Dosage: 5 MG, Q12MO
     Route: 042
  5. ACLASTA [Suspect]
     Active Substance: ZOLEDRONIC ACID
     Indication: OSTEOPOROSIS
  6. ANADOR//METAMIZOLE [Suspect]
     Active Substance: METAMIZOLE
     Indication: VIRAL INFECTION
     Dosage: 2 DF, QD (USED FOR 2 YEARS)
     Route: 048
  7. ANADOR//METAMIZOLE [Suspect]
     Active Substance: METAMIZOLE
     Indication: NASOPHARYNGITIS

REACTIONS (15)
  - Poisoning [Recovered/Resolved]
  - Viral infection [Recovered/Resolved]
  - Nasopharyngitis [Unknown]
  - Condition aggravated [Unknown]
  - Influenza [Unknown]
  - Gait disturbance [Not Recovered/Not Resolved]
  - Pyrexia [Recovered/Resolved]
  - Osteoarthritis [Not Recovered/Not Resolved]
  - Crying [Unknown]
  - Osteoporosis [Not Recovered/Not Resolved]
  - Spinal cord herniation [Not Recovered/Not Resolved]
  - Malaise [Unknown]
  - Headache [Unknown]
  - Memory impairment [Unknown]
  - Spinal pain [Unknown]
